FAERS Safety Report 23420265 (Version 1)
Quarter: 2024Q1

REPORT INFORMATION
  Report Type: Report from Study
  Country: RO (occurrence: RO)
  Receive Date: 20240119
  Receipt Date: 20240119
  Transmission Date: 20240410
  Serious: Yes (Hospitalization)
  Sender: FDA-Public Use
  Company Number: RO-CHIESI-2021CHF05428

PATIENT
  Age: 5 Year
  Sex: Male
  Weight: 26.5 kg

DRUGS (3)
  1. LAMZEDE [Suspect]
     Active Substance: VELMANASE ALFA-TYCV
     Indication: Alpha-mannosidosis
     Dosage: 1 MILLIGRAM/KILOGRAM, QW
     Route: 042
     Dates: start: 20201118, end: 20211008
  2. LAMZEDE [Suspect]
     Active Substance: VELMANASE ALFA-TYCV
     Dosage: 1 MILLIGRAM/KILOGRAM, QW
     Route: 042
     Dates: start: 20211015, end: 20211015
  3. LAMZEDE [Suspect]
     Active Substance: VELMANASE ALFA-TYCV
     Dosage: 1 MILLIGRAM/KILOGRAM, QW
     Route: 042
     Dates: start: 20211022, end: 20211022

REACTIONS (4)
  - Hepatic enzyme increased [Recovered/Resolved]
  - Gastroenteritis [Recovered/Resolved]
  - Adenoiditis [Recovered/Resolved]
  - C-reactive protein increased [Recovered/Resolved]

NARRATIVE: CASE EVENT DATE: 20211017
